FAERS Safety Report 8617517-6 (Version None)
Quarter: 2012Q3

REPORT INFORMATION
  Report Type: 
  Country: None (occurrence: None)
  Receive Date: 20120824
  Receipt Date: 20111107
  Transmission Date: 20120928
  Serious: No
  Sender: FDA-Public Use
  Company Number: US-ASTRAZENECA-2011SE67149

PATIENT
  Age: 63 Year
  Sex: Female
  Weight: 63.5 kg

DRUGS (3)
  1. SYMBICORT [Suspect]
     Indication: ASTHMA
     Dosage: 80/4.5 MCG, 2 PUFFS TWO TIMES A DAY
     Route: 055
     Dates: start: 20090101
  2. SIMBASTATIN [Concomitant]
     Indication: BLOOD CHOLESTEROL
  3. TOPROL-XL [Concomitant]
     Indication: BLOOD PRESSURE

REACTIONS (3)
  - FLUSHING [None]
  - FEELING JITTERY [None]
  - NERVOUSNESS [None]
